FAERS Safety Report 9379852 (Version 1)
Quarter: 2013Q2

REPORT INFORMATION
  Report Type: Spontaneous
  Country: US (occurrence: None)
  Receive Date: 20130627
  Receipt Date: 20130627
  Transmission Date: 20140414
  Serious: Yes (Other)
  Sender: FDA-Public Use
  Company Number: 2013PL000098

PATIENT
  Age: 46 Year
  Sex: Female

DRUGS (1)
  1. PROLEUKIN [Suspect]
     Indication: PRODUCT USED FOR UNKNOWN INDICATION

REACTIONS (19)
  - Dystonia [None]
  - Toxicity to various agents [None]
  - Pulmonary oedema [None]
  - Pulmonary embolism [None]
  - Metastases to central nervous system [None]
  - Malignant neoplasm progression [None]
  - Dysgeusia [None]
  - Electroencephalogram abnormal [None]
  - Anticonvulsant drug level decreased [None]
  - Torticollis [None]
  - Oromandibular dystonia [None]
  - Dyskinesia [None]
  - Hand deformity [None]
  - Gait disturbance [None]
  - Paraneoplastic syndrome [None]
  - Antinuclear antibody positive [None]
  - Vitiligo [None]
  - Autoimmune disorder [None]
  - Drug hypersensitivity [None]
